FAERS Safety Report 14415337 (Version 1)
Quarter: 2018Q1

REPORT INFORMATION
  Report Type: Spontaneous
  Country: GB (occurrence: GB)
  Receive Date: 20180121
  Receipt Date: 20180121
  Transmission Date: 20180509
  Serious: Yes (Other)
  Sender: FDA-Public Use
  Company Number: PHHY2018GB008251

PATIENT
  Age: 34 Year
  Sex: Female
  Weight: 95.25 kg

DRUGS (2)
  1. FLUCLOXACILLIN SODIUM [Interacting]
     Active Substance: FLUCLOXACILLIN
     Indication: INFECTED CYST
     Dosage: 500 MG, UNK
     Route: 048
  2. CLARITHROMYCIN. [Suspect]
     Active Substance: CLARITHROMYCIN
     Indication: PRODUCT USED FOR UNKNOWN INDICATION
     Dosage: UNK
     Route: 065

REACTIONS (3)
  - Eructation [Unknown]
  - Drug interaction [Unknown]
  - Nausea [Not Recovered/Not Resolved]

NARRATIVE: CASE EVENT DATE: 20171202
